FAERS Safety Report 8874137 (Version 1)
Quarter: 2012Q4

REPORT INFORMATION
  Report Type: 
  Country: US (occurrence: US)
  Receive Date: 20121023
  Receipt Date: 20121023
  Transmission Date: 20130627
  Serious: No
  Sender: FDA-Public Use
  Company Number: US-009507513-1210USA009739

PATIENT
  Age: 50 Year
  Sex: Male

DRUGS (2)
  1. INTRONA [Suspect]
     Indication: HEPATITIS C
     Dosage: UNK, qd
     Dates: start: 1998
  2. INTRONA [Suspect]
     Dosage: UNK, qd
     Dates: start: 2000, end: 2004

REACTIONS (4)
  - Suicidal ideation [Unknown]
  - Amnesia [Not Recovered/Not Resolved]
  - Confusional state [Not Recovered/Not Resolved]
  - Disturbance in attention [Not Recovered/Not Resolved]
